FAERS Safety Report 14963152 (Version 1)
Quarter: 2018Q2

REPORT INFORMATION
  Report Type: Spontaneous
  Country: DE (occurrence: DE)
  Receive Date: 20180601
  Receipt Date: 20180601
  Transmission Date: 20180711
  Serious: Yes (Death, Hospitalization)
  Sender: FDA-Public Use
  Company Number: DE-MYLANLABS-2018M1035052

PATIENT
  Age: 65 Year
  Sex: Male
  Weight: 60 kg

DRUGS (15)
  1. BUDESONID [Concomitant]
     Active Substance: BUDESONIDE
     Indication: CHRONIC OBSTRUCTIVE PULMONARY DISEASE
  2. IRINOTECAN [Concomitant]
     Active Substance: IRINOTECAN
     Indication: COLORECTAL CANCER
     Dosage: 100 MG, UNK (SUBSEQUENT DOSES ON 15/AUG/2013 22/AUG/2013 05/SEP/2013 12/SEP/2013 26/SEP/2013 17OCT13
     Route: 042
     Dates: start: 20130725
  3. CAPECITABINE. [Suspect]
     Active Substance: CAPECITABINE
     Indication: COLORECTAL CANCER
     Dosage: 2500 MG, UNK (FOR 14 DAYS OF A 3 WEEK CYCLE)
     Route: 048
  4. CAPECITABINE. [Suspect]
     Active Substance: CAPECITABINE
     Dosage: 2000 MG, UNK (FOR 14 DAYS OF A 3 WEEK CYCLE)
     Route: 048
  5. FILGRASTIM [Suspect]
     Active Substance: FILGRASTIM
     Indication: LEUKOPENIA
     Dosage: UNK
     Route: 065
  6. NOVAMINSULFON [Concomitant]
     Active Substance: METAMIZOLE
     Indication: MUSCULOSKELETAL PAIN
     Route: 065
  7. RAMIPRIL. [Concomitant]
     Active Substance: RAMIPRIL
     Indication: HYPERTENSION
  8. KALIUMIODID BC [Concomitant]
     Indication: PRODUCT USED FOR UNKNOWN INDICATION
  9. ZOLEDRONIC ACID [Concomitant]
     Active Substance: ZOLEDRONIC ACID
     Indication: METASTASES TO BONE
     Dosage: 1 DF, UNK
     Route: 065
     Dates: start: 20130628, end: 20131219
  10. FORMOTEROL [Concomitant]
     Active Substance: FORMOTEROL
     Indication: BRONCHOSPASM
  11. BEVACIZUMAB. [Suspect]
     Active Substance: BEVACIZUMAB
     Dosage: 437.5 MG, UNK
     Route: 042
  12. ALLOPURINOL. [Concomitant]
     Active Substance: ALLOPURINOL
     Indication: HYPERURICAEMIA
  13. IRINOTECAN [Concomitant]
     Active Substance: IRINOTECAN
     Dosage: 130 MG, (SUBSEQUENT DOSES ON 11/JUL/2013, 01/AUG/2013.)
     Route: 042
     Dates: start: 20130704
  14. BEVACIZUMAB. [Suspect]
     Active Substance: BEVACIZUMAB
     Indication: COLORECTAL CANCER METASTATIC
     Dosage: 450 MG, UNK
     Route: 042
  15. ASPIRIN. [Concomitant]
     Active Substance: ASPIRIN
     Indication: HYPERTENSION

REACTIONS (4)
  - Erosive oesophagitis [Fatal]
  - Oesophageal haemorrhage [Fatal]
  - Malignant neoplasm progression [Fatal]
  - Tracheal haemorrhage [Fatal]

NARRATIVE: CASE EVENT DATE: 20140101
